FAERS Safety Report 17069280 (Version 2)
Quarter: 2019Q4

REPORT INFORMATION
  Report Type: Spontaneous
  Country: GB (occurrence: GB)
  Receive Date: 20191125
  Receipt Date: 20191127
  Transmission Date: 20200122
  Serious: Yes (Hospitalization)
  Sender: FDA-Public Use
  Company Number: GB-BIOGEN-2019BI00809526

PATIENT
  Sex: Male

DRUGS (1)
  1. PLEGRIDY [Suspect]
     Active Substance: PEGINTERFERON BETA-1A
     Indication: MULTIPLE SCLEROSIS
     Dosage: PLEGRIDY 125MCG / 0.5ML
     Route: 058
     Dates: start: 2016

REACTIONS (3)
  - Mobility decreased [Unknown]
  - Vomiting [Unknown]
  - Fall [Recovered/Resolved]
